FAERS Safety Report 9063088 (Version 2)
Quarter: 2013Q1

REPORT INFORMATION
  Report Type: Spontaneous
  Country: US (occurrence: US)
  Receive Date: 20130213
  Receipt Date: 20130319
  Transmission Date: 20140127
  Serious: Yes (Other)
  Sender: FDA-Public Use
  Company Number: US-JNJFOC-20130111279

PATIENT
  Sex: Female
  Weight: 81.19 kg

DRUGS (11)
  1. SANDOZ FENTANYL TRANSDERMAL SYSTEM [Suspect]
     Indication: BACK PAIN
     Route: 062
     Dates: start: 20101221
  2. CALCIUM WITH VITAMIN D [Concomitant]
     Indication: OSTEOPOROSIS
     Route: 048
  3. ATENOLOL [Concomitant]
     Indication: HYPERTENSION
     Route: 048
     Dates: start: 2007
  4. ATORVASTATIN [Concomitant]
     Indication: HYPERCHOLESTEROLAEMIA
     Route: 048
     Dates: start: 2005
  5. OMEPRAZOLE [Concomitant]
     Indication: GASTROOESOPHAGEAL REFLUX DISEASE
     Route: 048
  6. PIOGLITAZONE [Concomitant]
     Indication: DIABETES MELLITUS
     Route: 048
     Dates: start: 20050601
  7. ASPIRIN [Concomitant]
     Indication: CARDIAC DISORDER
     Route: 048
  8. MULTIVITAMINS [Concomitant]
     Route: 048
  9. HUMULIN INSULIN 70/30 [Concomitant]
     Indication: DIABETES MELLITUS
     Dosage: IN EVENING
     Route: 058
     Dates: start: 200404
  10. HUMULIN INSULIN 70/30 [Concomitant]
     Indication: DIABETES MELLITUS
     Dosage: IN MORNING
     Route: 058
     Dates: start: 200404
  11. HUMULIN R [Concomitant]
     Indication: DIABETES MELLITUS
     Dosage: SLIDING CYCLE
     Route: 058
     Dates: start: 200404

REACTIONS (4)
  - Spinal fracture [Recovered/Resolved]
  - Product quality issue [Unknown]
  - Back pain [Not Recovered/Not Resolved]
  - Wrong technique in drug usage process [Unknown]
